FAERS Safety Report 6981349-5 (Version None)
Quarter: 2010Q3

REPORT INFORMATION
  Report Type: 
  Country: None (occurrence: None)
  Receive Date: 20100909
  Receipt Date: 20100827
  Transmission Date: 20110219
  Serious: Yes (Hospitalization)
  Sender: FDA-Public Use
  Company Number: 017960

PATIENT
  Sex: Female
  Weight: 84.8 kg

DRUGS (4)
  1. KEPPRA [Suspect]
     Indication: GRAND MAL CONVULSION
     Dosage: 500 MG BID ORAL
     Route: 048
     Dates: start: 20100801
  2. KEPPRA [Suspect]
     Indication: GRAND MAL CONVULSION
     Dates: start: 20090101
  3. LISINOPRIL [Concomitant]
  4. ASPIRIN [Concomitant]

REACTIONS (4)
  - CONVULSION [None]
  - INAPPROPRIATE SCHEDULE OF DRUG ADMINISTRATION [None]
  - MEMORY IMPAIRMENT [None]
  - PANIC ATTACK [None]
